FAERS Safety Report 17444630 (Version 1)
Quarter: 2020Q1

REPORT INFORMATION
  Report Type: Spontaneous
  Country: FR (occurrence: FR)
  Receive Date: 20200221
  Receipt Date: 20200221
  Transmission Date: 20200409
  Serious: Yes (Hospitalization)
  Sender: FDA-Public Use
  Company Number: FR-TEVA-2020-FR-1188859

PATIENT
  Age: 37 Year
  Sex: Female
  Weight: 50 kg

DRUGS (17)
  1. NEFOPAM (CHLORHYDRATE DE) [Concomitant]
     Active Substance: NEFOPAM HYDROCHLORIDE
     Route: 042
  2. MORPHINE [Concomitant]
     Active Substance: MORPHINE
     Route: 042
     Dates: start: 20191214
  3. TAZOCILLINE [Suspect]
     Active Substance: PIPERACILLIN SODIUM\TAZOBACTAM SODIUM
     Indication: DERMO-HYPODERMITIS
     Dosage: SEE COMMENT
     Route: 042
     Dates: start: 20191215, end: 20191218
  4. OXYCODONE [Concomitant]
     Active Substance: OXYCODONE
     Dosage: 40 MG 1 DAYS
     Route: 048
  5. PARACETAMOL [Concomitant]
     Active Substance: ACETAMINOPHEN
     Dosage: 4 GRAM 1 DAYS
     Route: 048
  6. VANCOMYCINE [Suspect]
     Active Substance: VANCOMYCIN
     Indication: DERMO-HYPODERMITIS
     Dosage: SEE COMMENT
     Route: 042
     Dates: start: 20191215, end: 20191217
  7. ONDANSETRON [Concomitant]
     Active Substance: ONDANSETRON
     Route: 042
  8. PRIMPERAN [Concomitant]
     Active Substance: METOCLOPRAMIDE HYDROCHLORIDE
     Route: 042
  9. KETOPROFENE [Suspect]
     Active Substance: KETOPROFEN
     Indication: PRODUCT USED FOR UNKNOWN INDICATION
     Dosage: 200 MG 1 DAYS
     Route: 048
     Dates: start: 20191215
  10. VOGALENE [Concomitant]
     Active Substance: METOPIMAZINE
     Route: 048
  11. DROPERIDOL. [Concomitant]
     Active Substance: DROPERIDOL
     Route: 042
  12. LOVENOX [Concomitant]
     Active Substance: ENOXAPARIN SODIUM
     Route: 058
     Dates: start: 20191216
  13. GENTAMICINE [Suspect]
     Active Substance: GENTAMICIN
     Indication: DERMO-HYPODERMITIS
     Dosage: SEE COMMENT
     Route: 042
     Dates: start: 20191215, end: 20191216
  14. MOVICOL [Concomitant]
     Active Substance: POLYETHYLENE GLYCOL 3350\POTASSIUM CHLORIDE\SODIUM BICARBONATE\SODIUM CHLORIDE
     Route: 048
  15. SERESTA 10 MG, COMPRIM? [Concomitant]
     Active Substance: OXAZEPAM
     Dosage: 3 DOSAGE FORMS 1 DAYS
     Route: 048
  16. PREGABALINE [Concomitant]
     Active Substance: PREGABALIN
     Route: 048
  17. LAROXYL [Concomitant]
     Active Substance: AMITRIPTYLINE HYDROCHLORIDE
     Dosage: 9 MG 1 DAYS
     Route: 048
     Dates: start: 20191215

REACTIONS (2)
  - Hepatic enzyme increased [Recovered/Resolved]
  - Acute kidney injury [Recovered/Resolved]

NARRATIVE: CASE EVENT DATE: 20191217
